FAERS Safety Report 8355753-7 (Version None)
Quarter: 2012Q2

REPORT INFORMATION
  Report Type: 
  Country: None (occurrence: None)
  Receive Date: 20120514
  Receipt Date: 20120509
  Transmission Date: 20120825
  Serious: No
  Sender: FDA-Public Use
  Company Number: US-PFIZER INC-2012113366

PATIENT
  Sex: Female
  Weight: 62.132 kg

DRUGS (5)
  1. PREMARIN [Suspect]
     Indication: VULVOVAGINAL DRYNESS
     Dosage: UNK, 2X/WEEK
     Route: 067
     Dates: start: 20111201, end: 20120501
  2. LOVAZA [Concomitant]
     Dosage: 600 MG, DAILY
  3. PREMARIN [Suspect]
     Indication: SENSORY DISTURBANCE
  4. ASPIRIN [Concomitant]
     Dosage: 81 MG, DAILY
  5. MULTI-VITAMINS [Concomitant]
     Dosage: UNK, DAILY

REACTIONS (3)
  - BURNING SENSATION [None]
  - PAIN [None]
  - MUSCLE SPASMS [None]
